FAERS Safety Report 4396578-7 (Version None)
Quarter: 2004Q3

REPORT INFORMATION
  Report Type: 
  Country: None (occurrence: None)
  Receive Date: 20040712
  Receipt Date: 20040629
  Transmission Date: 20050211
  Serious: Yes (Hospitalization)
  Sender: FDA-Public Use
  Company Number: 04P-167-0265305-00

PATIENT
  Sex: Male

DRUGS (7)
  1. MERIDIA [Suspect]
     Dates: start: 20020101
  2. ACETAMINOPHEN W/ CODEINE [Concomitant]
  3. ALBUTEROL SULFATE [Concomitant]
  4. BECLOMETHASONE DIPROPIONATE [Concomitant]
  5. AMISULPRIDE [Concomitant]
  6. MIRTAZAPINE [Concomitant]
  7. LANSOPRAZOLE [Concomitant]

REACTIONS (2)
  - DEPRESSION [None]
  - PERSONALITY DISORDER [None]
